FAERS Safety Report 19771466 (Version 18)
Quarter: 2024Q3

REPORT INFORMATION
  Report Type: Report from Study
  Country: GB (occurrence: GB)
  Receive Date: 20210831
  Receipt Date: 20240913
  Transmission Date: 20241017
  Serious: Yes (Hospitalization)
  Sender: PFIZER
  Company Number: GB-TEVA-2021-GB-1941401

PATIENT
  Age: 52 Year
  Sex: Female
  Weight: 101 kg

DRUGS (26)
  1. VINCRISTINE SULFATE [Suspect]
     Active Substance: VINCRISTINE SULFATE
     Indication: Diffuse large B-cell lymphoma stage IV
     Dosage: REGIMEN #1, C1D1, 1.4 MG/M2, EVERY 3 WEEKS
     Route: 042
     Dates: start: 20210721, end: 20210721
  2. VINCRISTINE SULFATE [Suspect]
     Active Substance: VINCRISTINE SULFATE
     Dosage: REGIMEN #2, RP1D1, 1.4 MG/M2, EVERY 3 WEEKS
     Route: 042
     Dates: start: 20210811, end: 20210811
  3. DOXORUBICIN HYDROCHLORIDE [Suspect]
     Active Substance: DOXORUBICIN HYDROCHLORIDE
     Indication: Diffuse large B-cell lymphoma stage IV
     Dosage: REGIMEN #1, C1D1, 50 MG/M2, EVERY 3 WEEKS 1Q3W
     Route: 042
     Dates: start: 20210721, end: 20210721
  4. DOXORUBICIN HYDROCHLORIDE [Suspect]
     Active Substance: DOXORUBICIN HYDROCHLORIDE
     Dosage: REGIMEN #2, RP1D1, 50 MG/M2, EVERY 3 WEEKS 1Q3W
     Route: 042
     Dates: start: 20210811, end: 20210811
  5. RITUXIMAB [Suspect]
     Active Substance: RITUXIMAB
     Indication: Diffuse large B-cell lymphoma stage IV
     Dosage: REGIMEN #1, C1D1, 375 MG/M2, 1Q3W
     Route: 042
     Dates: start: 20210721, end: 20210722
  6. RITUXIMAB [Suspect]
     Active Substance: RITUXIMAB
     Dosage: REGIMEN #2, RP1D1, 375 MG/M2, 1Q3W
     Route: 042
     Dates: start: 20210811, end: 20210811
  7. CYCLOPHOSPHAMIDE [Suspect]
     Active Substance: CYCLOPHOSPHAMIDE
     Indication: Diffuse large B-cell lymphoma stage IV
     Dosage: REGIMEN #1, C1D1, 750 MG/M2, EVERY 3 WEEKS
     Route: 042
     Dates: start: 20210721, end: 20210721
  8. CYCLOPHOSPHAMIDE [Suspect]
     Active Substance: CYCLOPHOSPHAMIDE
     Dosage: REGIMEN #2, RP1D1, 750 MG/M2, EVERY 3 WEEKS (SINGLE)
     Route: 042
     Dates: start: 20210811, end: 20210811
  9. EPCORITAMAB [Suspect]
     Active Substance: EPCORITAMAB
     Indication: Diffuse large B-cell lymphoma stage IV
     Dosage: REGIMEN#1, C1D1, PRIMING DOSE: 0.16 MG, SINGLE
     Route: 058
     Dates: start: 20210722, end: 20210722
  10. EPCORITAMAB [Suspect]
     Active Substance: EPCORITAMAB
     Dosage: REGIMEN#2, RP1D1, PRIMING DOSE: 0.16 MG, SINGLE
     Route: 058
     Dates: start: 20210811, end: 20210811
  11. PREDNISOLONE [Suspect]
     Active Substance: PREDNISOLONE
     Indication: Diffuse large B-cell lymphoma stage IV
     Dosage: REGIMEN #1, 100 MG, 1X/DAY
     Route: 048
     Dates: start: 20210721, end: 20210725
  12. PREDNISOLONE [Suspect]
     Active Substance: PREDNISOLONE
     Dosage: REGIMEN #2, 100 MG, 1X/DAY
     Route: 048
     Dates: start: 20210811, end: 20210815
  13. CHLORPHENIRAMINE MALEATE [Concomitant]
     Active Substance: CHLORPHENIRAMINE MALEATE
     Indication: Premedication
     Dosage: 10 MG
     Route: 042
     Dates: start: 20210721, end: 20210811
  14. ACETAMINOPHEN [Concomitant]
     Active Substance: ACETAMINOPHEN
     Indication: Premedication
     Dosage: 1 G
     Route: 048
     Dates: start: 20210721, end: 20210811
  15. ONDANSETRON [Concomitant]
     Active Substance: ONDANSETRON
     Dosage: UNK
     Dates: start: 20210721, end: 20210813
  16. RASBURICASE [Concomitant]
     Active Substance: RASBURICASE
     Dosage: UNK
     Dates: start: 20210721, end: 20210722
  17. FILGRASTIM [Concomitant]
     Active Substance: FILGRASTIM
     Dosage: UNK
     Dates: start: 20210812, end: 20210818
  18. ACYCLOVIR [Concomitant]
     Active Substance: ACYCLOVIR
     Dosage: UNK
     Dates: start: 20210721
  19. COTRIMOXAZOLE [Concomitant]
     Active Substance: SULFAMETHOXAZOLE\TRIMETHOPRIM
     Dosage: UNK
     Dates: start: 20210721
  20. CODEINE [Concomitant]
     Active Substance: CODEINE
     Dosage: UNK
     Dates: start: 20210721
  21. FLUCONAZOLE [Concomitant]
     Active Substance: FLUCONAZOLE
     Dosage: UNK
     Dates: start: 20210721
  22. LANSOPRAZOLE [Concomitant]
     Active Substance: LANSOPRAZOLE
     Dosage: UNK
     Dates: start: 202106
  23. METOCLOPRAMIDE [Concomitant]
     Active Substance: METOCLOPRAMIDE
     Dosage: UNK
     Dates: start: 20210721
  24. CYCLIZINE [Concomitant]
     Active Substance: CYCLIZINE
     Dosage: UNK
     Dates: start: 20210824, end: 202204
  25. SENNA [Concomitant]
     Active Substance: SENNA LEAF\SENNOSIDES\SENNOSIDES A AND B
     Dosage: UNK
     Dates: start: 20210818
  26. DALTEPARIN [Concomitant]
     Active Substance: DALTEPARIN
     Dosage: UNK
     Dates: start: 20210721, end: 20210827

REACTIONS (2)
  - Febrile neutropenia [Recovered/Resolved]
  - Febrile neutropenia [Recovered/Resolved]

NARRATIVE: CASE EVENT DATE: 20210727
